FAERS Safety Report 14035108 (Version 2)
Quarter: 2017Q4

REPORT INFORMATION
  Report Type: Spontaneous
  Country: US (occurrence: US)
  Receive Date: 20171003
  Receipt Date: 20171025
  Transmission Date: 20180321
  Serious: Yes (Hospitalization, Other)
  Sender: FDA-Public Use
  Company Number: US-PFIZER INC-2017424130

PATIENT
  Age: 65 Year
  Sex: Male

DRUGS (5)
  1. OMEPRAZOLE. [Concomitant]
     Active Substance: OMEPRAZOLE
     Indication: GASTRIC DISORDER
     Dosage: 40 MG, UNK
  2. CLOPIDOGREL [Concomitant]
     Active Substance: CLOPIDOGREL BISULFATE
     Dosage: 75 MG, UNK
  3. PLAVIX [Concomitant]
     Active Substance: CLOPIDOGREL BISULFATE
  4. LYRICA [Suspect]
     Active Substance: PREGABALIN
     Indication: CELLULITIS
     Dosage: 150 MG, 3X/DAY
     Route: 048
  5. SIMVASTATIN. [Concomitant]
     Active Substance: SIMVASTATIN
     Dosage: 40 MG, UNK

REACTIONS (7)
  - Fatigue [Not Recovered/Not Resolved]
  - Acute kidney injury [Recovering/Resolving]
  - Product use in unapproved indication [Unknown]
  - Prostate infection [Unknown]
  - Anal fistula infection [Recovered/Resolved]
  - Sepsis [Recovering/Resolving]
  - Haemorrhage urinary tract [Recovered/Resolved]

NARRATIVE: CASE EVENT DATE: 20170905
